FAERS Safety Report 24685280 (Version 1)
Quarter: 2024Q4

REPORT INFORMATION
  Report Type: Spontaneous
  Country: US (occurrence: None)
  Receive Date: 20241127
  Receipt Date: 20241127
  Transmission Date: 20250115
  Serious: No
  Sender: Public
  Company Number: None

PATIENT
  Age: 48 Year
  Sex: Female
  Weight: 79.83 kg

DRUGS (1)
  1. COSENTYX [Suspect]
     Active Substance: SECUKINUMAB
     Indication: Hidradenitis
     Dosage: FREQUENCY : AS DIRECTED;?INJECT 3()0MG (2 PENS) SUBCUTANEOUSLY EVERY WEEK FOR 5 WEEKS AS DIRECTED I[
     Route: 058
     Dates: start: 202408

REACTIONS (1)
  - Stent placement [None]
